FAERS Safety Report 9486848 (Version 2)
Quarter: 2013Q3

REPORT INFORMATION
  Report Type: Spontaneous
  Country: US (occurrence: US)
  Receive Date: 20130829
  Receipt Date: 20130911
  Transmission Date: 20140515
  Serious: Yes (Other)
  Sender: FDA-Public Use
  Company Number: US-AMGEN-USASP2013060008

PATIENT
  Sex: Male
  Weight: 83.9 kg

DRUGS (1)
  1. ENBREL [Suspect]
     Indication: PRODUCT USED FOR UNKNOWN INDICATION
     Dosage: 50 MG, 2 TIMES/WK
     Route: 065

REACTIONS (8)
  - Oedema peripheral [Recovered/Resolved]
  - Injection site reaction [Recovered/Resolved]
  - Rubber sensitivity [Recovered/Resolved]
  - Reaction to preservatives [Recovered/Resolved]
  - Injection site erythema [Recovered/Resolved]
  - Injection site swelling [Recovered/Resolved]
  - Injection site pruritus [Recovered/Resolved]
  - Rash [Recovered/Resolved]
